FAERS Safety Report 6069044-0 (Version None)
Quarter: 2009Q1

REPORT INFORMATION
  Report Type: 
  Country: None (occurrence: None)
  Receive Date: 20090203
  Receipt Date: 20090123
  Transmission Date: 20090719
  Serious: Yes (Death)
  Sender: FDA-Public Use
  Company Number: 6048522

PATIENT
  Age: 71 Year
  Sex: Male

DRUGS (11)
  1. LEVOTHYROXINE SODIUM [Suspect]
     Indication: HYPOTHYROIDISM
     Dosage: 1 DOSAGE FORMS (1 DOSAGE FORMS,1 IN 1 D) ORAL
     Route: 048
  2. CORDARONE [Suspect]
     Indication: DRUG USE FOR UNKNOWN INDICATION
     Dosage: 1 DOSAGE FORMS (1 DOSAGE FORMS,1 IN 1 D) ORAL
     Route: 048
  3. KAREGIC(75 MG, POWDER FOR ORAL SOLUTION) (ACETYLSALICYLIC LYSINE) [Concomitant]
  4. BUMETANIDE [Concomitant]
  5. TAHOR (40 MG, COATED TABLET) (ATORVASTATIN CALCIUM) [Concomitant]
  6. CARDENSIEL 2.5 MG(2.5 MG, COATED TABLET) (BISOPROLOL FUMARATE) [Concomitant]
  7. ATACAND [Concomitant]
  8. NOVONORM(2 MG, TABLET) (REPAGLINIDE) [Concomitant]
  9. AMAREL(4 MG, TABLET) (GLIMEPIRIDE) [Concomitant]
  10. WARFARIN SODIUM [Concomitant]
  11. INSPRA(25 MG, COATED TABLET) (EPLERENONE) [Concomitant]

REACTIONS (5)
  - ASTHENIA [None]
  - HAEMODYNAMIC INSTABILITY [None]
  - HYPERTHYROIDISM [None]
  - IMPLANTABLE DEFIBRILLATOR REMOVAL [None]
  - PYREXIA [None]
